FAERS Safety Report 4881208-8 (Version None)
Quarter: 2005Q4

REPORT INFORMATION
  Report Type: 
  Country: None (occurrence: None)
  Receive Date: 20051215
  Receipt Date: 20051010
  Transmission Date: 20060501
  Serious: Yes (Death)
  Sender: FDA-Public Use
  Company Number: US-JNJFOC-20050305595

PATIENT
  Age: 24 Year
  Sex: Female
  Weight: 58.9676 kg

DRUGS (4)
  1. ORTHO EVRA [Suspect]
     Indication: MENSTRUATION IRREGULAR
     Dosage: 1 DOSE(S), 3 IN 4 WEEK, TRANSDERMAL
     Route: 062
     Dates: start: 20040516, end: 20040904
  2. ZOLOFT [Concomitant]
  3. ACETAMINOPHEN [Concomitant]
  4. ANTI-INFLAMMATORY (ANTIINFLAMMATORY/ANTIRHEUMATIC PRODUCTS) [Concomitant]

REACTIONS (2)
  - ARTHRALGIA [None]
  - PULMONARY EMBOLISM [None]
